FAERS Safety Report 14670732 (Version 1)
Quarter: 2018Q1

REPORT INFORMATION
  Report Type: Report from Study
  Country: US (occurrence: US)
  Receive Date: 20180322
  Receipt Date: 20180322
  Transmission Date: 20180509
  Serious: No
  Sender: FDA-Public Use
  Company Number: US-SHIRE-US201810038

PATIENT
  Age: 61 Year
  Sex: Female

DRUGS (1)
  1. HUMAN NORMAL IMMUNOGLOBULIN; LIQUID 20 [Suspect]
     Active Substance: HUMAN IMMUNOGLOBULIN G
     Indication: IMMUNODEFICIENCY COMMON VARIABLE
     Dosage: 24 G, EVERY 2 WEEKS
     Route: 065

REACTIONS (4)
  - Influenza like illness [Unknown]
  - Fatigue [Unknown]
  - Infusion site swelling [Unknown]
  - Headache [Unknown]

NARRATIVE: CASE EVENT DATE: 20180228
